FAERS Safety Report 5775109-0 (Version None)
Quarter: 2008Q2

REPORT INFORMATION
  Report Type: 
  Country: None (occurrence: None)
  Receive Date: 20080617
  Receipt Date: 20080613
  Transmission Date: 20081010
  Serious: Yes (Hospitalization)
  Sender: FDA-Public Use
  Company Number: JP-ASTRAZENECA-2008AP04071

PATIENT
  Age: 24551 Day
  Sex: Male
  Weight: 59 kg

DRUGS (3)
  1. TENORMIN [Suspect]
     Indication: HYPERTENSION
     Route: 048
     Dates: start: 20010831, end: 20080423
  2. DETANTOL R [Concomitant]
     Indication: HYPERTENSION
     Route: 048
     Dates: start: 19981203
  3. NORVASC [Concomitant]
     Indication: HYPERTENSION
     Route: 048
     Dates: start: 20061108

REACTIONS (1)
  - ATRIOVENTRICULAR BLOCK SECOND DEGREE [None]
